FAERS Safety Report 8822621 (Version 2)
Quarter: 2012Q4

REPORT INFORMATION
  Report Type: 
  Country: BR (occurrence: BR)
  Receive Date: 20121003
  Receipt Date: 20121029
  Transmission Date: 20130627
  Serious: Yes (Life-Threatening, Hospitalization, Congenital Anomaly)
  Sender: FDA-Public Use
  Company Number: BR-PFIZER INC-2012239984

PATIENT
  Sex: Male

DRUGS (1)
  1. MEDROXYPROGESTERONE ACETATE [Suspect]
     Indication: CONTRACEPTION
     Dosage: 150 mg, every 3 months
     Route: 064
     Dates: start: 20091218

REACTIONS (7)
  - Maternal exposure timing unspecified [Unknown]
  - Bronchopneumonia [Unknown]
  - Pneumonia [Unknown]
  - Bronchospasm [Unknown]
  - White blood cell disorder [Unknown]
  - Platelet count increased [Unknown]
  - Pain [Unknown]
